FAERS Safety Report 12529060 (Version 2)
Quarter: 2016Q3

REPORT INFORMATION
  Report Type: Report from Study
  Country: US (occurrence: US)
  Receive Date: 20160705
  Receipt Date: 20160712
  Transmission Date: 20161109
  Serious: Yes (Hospitalization)
  Sender: FDA-Public Use
  Company Number: US-CELGENEUS-USA-2016067441

PATIENT
  Age: 51 Year
  Sex: Male

DRUGS (1)
  1. REVLIMID [Suspect]
     Active Substance: LENALIDOMIDE
     Indication: B-CELL LYMPHOMA
     Dosage: 120 MILLIGRAM
     Route: 048
     Dates: start: 201601, end: 201601

REACTIONS (2)
  - Febrile neutropenia [Unknown]
  - Adverse event [Unknown]

NARRATIVE: CASE EVENT DATE: 20160101
